FAERS Safety Report 9114601 (Version 1)
Quarter: 2013Q1

REPORT INFORMATION
  Report Type: Spontaneous
  Country: IT (occurrence: None)
  Receive Date: 20130129
  Receipt Date: 20130129
  Transmission Date: 20140127
  Serious: No
  Sender: FDA-Public Use
  Company Number: AUR-APL-2013-00896

PATIENT
  Age: 33 Year
  Sex: Female

DRUGS (4)
  1. AMOXICILLIN (AMOXICILLIN) [Suspect]
     Indication: PRODUCT USED FOR UNKNOWN INDICATION
     Dosage: 4 DOSAGE FORMS, TOTAL) ORAL
     Dates: start: 20121125, end: 20121125
  2. CIPROXIN (CIPROFLOXACIN) [Suspect]
     Indication: PRODUCT USED FOR UNKNOWN INDICATION
     Dosage: (8 DOSGAE, FORMS, TOTAL), ORAL
     Route: 048
     Dates: start: 20121125, end: 20121125
  3. AMOBARBITAL (AMOBARBITAL) [Suspect]
     Indication: PRODUCT USED FOR UNKNOWN INDICATION
  4. DICLOFENAC [Suspect]
     Indication: PRODUCT USED FOR UNKNOWN INDICATION

REACTIONS (1)
  - Intentional self-injury [None]
